FAERS Safety Report 8899860 (Version 1)
Quarter: 2012Q4

REPORT INFORMATION
  Report Type: Report from Study
  Country: CA (occurrence: CA)
  Receive Date: 20121109
  Receipt Date: 20121109
  Transmission Date: 20130627
  Serious: Yes (Death, Hospitalization, Other)
  Sender: FDA-Public Use
  Company Number: PHHY2012CA102903

PATIENT
  Age: 65 Year
  Sex: Female

DRUGS (6)
  1. CLOZARIL [Suspect]
     Dosage: 12.5 mg, UNK
     Dates: start: 20000504
  2. LASIX [Concomitant]
  3. METOCLOPRAMIDE [Concomitant]
  4. POTASSIUM [Concomitant]
  5. NEXIUM [Concomitant]
  6. WARFARIN [Concomitant]

REACTIONS (2)
  - Death [Fatal]
  - Fall [Unknown]
